FAERS Safety Report 5961495-5 (Version None)
Quarter: 2008Q4

REPORT INFORMATION
  Report Type: 
  Country: None (occurrence: None)
  Receive Date: 20081121
  Receipt Date: 20081118
  Transmission Date: 20090506
  Serious: Yes (Hospitalization)
  Sender: FDA-Public Use
  Company Number: US-AVENTIS-200817235US

PATIENT
  Sex: Male

DRUGS (13)
  1. LOVENOX [Suspect]
     Route: 058
     Dates: start: 20081004, end: 20081015
  2. LOVENOX [Suspect]
     Indication: ATRIAL FIBRILLATION
     Route: 058
     Dates: start: 20081004, end: 20081015
  3. ORAL ANTIDIABETICS [Concomitant]
     Dosage: DOSE: UNK
  4. TOPROL-XL [Concomitant]
     Dosage: DOSE: UNK
  5. ALDACTONE [Concomitant]
     Dosage: DOSE: UNK
  6. LASIX [Concomitant]
     Dosage: DOSE: UNK
  7. VALIUM [Concomitant]
     Dosage: DOSE: UNK
  8. PEPCID [Concomitant]
     Dosage: DOSE: UNK
  9. PROSCAR [Concomitant]
     Dosage: DOSE: UNK
  10. FLOMAX [Concomitant]
     Dosage: DOSE: UNK
  11. ASPIRIN [Concomitant]
     Dosage: DOSE: UNK
  12. VASOTEC                            /00935901/ [Concomitant]
     Dosage: DOSE: UNK
  13. PAXIL [Concomitant]
     Dosage: DOSE: UNK

REACTIONS (6)
  - DIARRHOEA [None]
  - INJECTION SITE HAEMATOMA [None]
  - INJECTION SITE NODULE [None]
  - MALAISE [None]
  - VOMITING [None]
  - WRONG TECHNIQUE IN DRUG USAGE PROCESS [None]
